FAERS Safety Report 12470834 (Version 1)
Quarter: 2016Q2

REPORT INFORMATION
  Report Type: Spontaneous
  Country: US (occurrence: None)
  Receive Date: 20160615
  Receipt Date: 20160615
  Transmission Date: 20160815
  Serious: No
  Sender: FDA-Public Use
  Company Number: None

PATIENT
  Age: 32 Year
  Sex: Female
  Weight: 81.65 kg

DRUGS (6)
  1. ZECUITY [Suspect]
     Active Substance: SUMATRIPTAN SUCCINATE
     Indication: MIGRAINE
     Dosage: 4 PATCH (ES) ONCE A DAY APPLIED AS MEDICATED PATCH TO SKIN
     Dates: start: 20160610, end: 20160610
  2. BOTOX [Concomitant]
     Active Substance: ONABOTULINUMTOXINA
  3. VITAMIN C [Concomitant]
     Active Substance: ASCORBIC ACID
  4. GABAPENTIN. [Concomitant]
     Active Substance: GABAPENTIN
  5. FISH OIL [Concomitant]
     Active Substance: FISH OIL
  6. VITAMIN B12 [Concomitant]
     Active Substance: CYANOCOBALAMIN

REACTIONS (3)
  - Application site erythema [None]
  - Application site vesicles [None]
  - Application site burn [None]

NARRATIVE: CASE EVENT DATE: 20160610
